FAERS Safety Report 8834952 (Version 2)
Quarter: 2012Q4

REPORT INFORMATION
  Report Type: 
  Country: US (occurrence: US)
  Receive Date: 20121011
  Receipt Date: 20121023
  Transmission Date: 20130627
  Serious: No
  Sender: FDA-Public Use
  Company Number: US-BIOGENIDEC-2012BI042386

PATIENT
  Age: 51 None
  Sex: Female

DRUGS (1)
  1. TYSABRI [Suspect]
     Indication: MULTIPLE SCLEROSIS
     Route: 042
     Dates: start: 20110408, end: 20120824

REACTIONS (4)
  - Influenza like illness [Recovered/Resolved]
  - Hepatic enzyme [Not Recovered/Not Resolved]
  - Gait disturbance [Recovered/Resolved]
  - Pharyngitis streptococcal [Recovered/Resolved]
